FAERS Safety Report 7293832-6 (Version None)
Quarter: 2011Q1

REPORT INFORMATION
  Report Type: 
  Country: None (occurrence: None)
  Receive Date: 20110215
  Receipt Date: 20110209
  Transmission Date: 20110831
  Serious: Yes (Other)
  Sender: FDA-Public Use
  Company Number: US-PFIZER INC-2010177617

PATIENT
  Age: 62 Year
  Sex: Female
  Weight: 53.515 kg

DRUGS (3)
  1. ROBITUSSIN NIGHT TIME COUGH COLD AND FLU [Suspect]
     Indication: COUGH
     Dosage: 4 TEASPOONS EVERY FIVE HOURS
     Route: 048
     Dates: start: 20101219, end: 20101220
  2. ROBITUSSIN NIGHT TIME COUGH COLD AND FLU [Suspect]
     Indication: NASOPHARYNGITIS
  3. SYNTHROID [Concomitant]
     Dosage: UNK

REACTIONS (3)
  - DIZZINESS [None]
  - SYNCOPE [None]
  - BLOOD PRESSURE DECREASED [None]
